FAERS Safety Report 9936926 (Version 1)
Quarter: 2014Q1

REPORT INFORMATION
  Report Type: Spontaneous
  Country: US (occurrence: None)
  Receive Date: 20140115
  Receipt Date: 20140115
  Transmission Date: 20141002
  Serious: Yes (Other)
  Sender: FDA-Public Use
  Company Number: 2013US002640

PATIENT
  Age: 42 Year
  Sex: Male
  Weight: 79 kg

DRUGS (9)
  1. ICLUSIG [Suspect]
     Indication: CHRONIC MYELOID LEUKAEMIA
     Route: 048
     Dates: end: 201310
  2. POTASSIUM CHLORIDE (POTASSIUM CHLORIDE) [Concomitant]
  3. PREDNISONE (PREDNISONE) [Concomitant]
  4. TAMSULOSIN [Concomitant]
  5. VALACYCLOVIR [Concomitant]
  6. FLUCONAZOLE (FLUCONAZOLE) [Concomitant]
  7. FLUDROCORTISONE [Concomitant]
  8. BACTRIM [Concomitant]
  9. LISINOPRIL (LISINOPRIL) [Concomitant]

REACTIONS (2)
  - Asthenia [None]
  - Chills [None]
